FAERS Safety Report 6077955-5 (Version None)
Quarter: 2009Q1

REPORT INFORMATION
  Report Type: 
  Country: None (occurrence: None)
  Receive Date: 20090213
  Receipt Date: 20090205
  Transmission Date: 20090719
  Serious: Yes (Hospitalization)
  Sender: FDA-Public Use
  Company Number: US-KINGPHARMUSA00001-K200900115

PATIENT
  Age: 79 Year
  Sex: Female

DRUGS (30)
  1. ALTACE [Suspect]
     Dosage: 1 DF, QD
     Route: 048
     Dates: start: 20051026, end: 20051122
  2. ALTACE [Suspect]
     Dosage: 5 MG, QD
     Dates: start: 20051026, end: 20051101
  3. ALTACE [Suspect]
     Dosage: 2.5 MG, QD
     Route: 048
     Dates: start: 20051108, end: 20051118
  4. ALTACE [Suspect]
     Dosage: 5 MG, QD
     Route: 048
     Dates: start: 20051124
  5. HYDROCHLOROTHIAZIDE [Suspect]
     Dosage: 1 DF, QD
     Route: 048
     Dates: start: 20051026, end: 20051122
  6. NEXIUM [Suspect]
     Dosage: 40 MG, QD
     Route: 048
     Dates: start: 20050701
  7. CYMBALTA [Suspect]
     Dosage: 30 MG, QD
     Route: 048
     Dates: start: 20051018, end: 20051019
  8. CYMBALTA [Suspect]
     Dosage: 60 MG, QD
     Route: 048
     Dates: start: 20051020, end: 20051102
  9. CYMBALTA [Suspect]
     Dosage: 90 MG, QD
     Route: 048
     Dates: start: 20051103, end: 20051110
  10. CYMBALTA [Suspect]
     Dosage: 30 MG, QD
     Route: 048
     Dates: start: 20051111, end: 20051118
  11. MELPERONE [Suspect]
     Dosage: 125 MG, QD
     Route: 048
     Dates: start: 20050921, end: 20051120
  12. MELPERONE [Suspect]
     Dosage: 50 MG, QD
     Route: 048
     Dates: start: 20051121, end: 20051122
  13. TORSEMIDE [Suspect]
     Dosage: 5 MG, QD
     Route: 048
     Dates: start: 20051026, end: 20051118
  14. SEROQUEL [Suspect]
     Indication: DEPRESSION
     Dosage: 50 MG, QD
     Route: 048
     Dates: start: 20050905, end: 20050909
  15. SEROQUEL [Suspect]
     Dosage: 75 MG, QD
     Route: 048
     Dates: start: 20050910, end: 20050916
  16. SEROQUEL [Suspect]
     Dosage: 100 MG, QD
     Route: 048
     Dates: start: 20050917, end: 20050921
  17. SEROQUEL [Suspect]
     Dosage: 125 MG, QD
     Route: 048
     Dates: start: 20050922, end: 20050926
  18. SEROQUEL [Suspect]
     Dosage: 100 MG, QD
     Route: 048
     Dates: start: 20050927, end: 20051103
  19. SEROQUEL [Suspect]
     Dosage: 150 MG, QD
     Route: 048
     Dates: start: 20051104, end: 20051108
  20. SEROQUEL [Suspect]
     Dosage: 100 MG, QD
     Route: 048
     Dates: start: 20051109, end: 20051121
  21. LORAZEPAM [Concomitant]
     Dosage: 4 MG, UNK
     Route: 048
     Dates: start: 20050914, end: 20051001
  22. LORAZEPAM [Concomitant]
     Dosage: 2 MG, UNK
     Route: 048
     Dates: start: 20051002, end: 20051028
  23. LORAZEPAM [Concomitant]
     Dosage: 1.5 MG, UNK
     Route: 048
     Dates: start: 20051029, end: 20051102
  24. LORAZEPAM [Concomitant]
     Dosage: 1 MG, UNK
     Route: 048
     Dates: start: 20051103, end: 20051108
  25. LORAZEPAM [Concomitant]
     Dosage: 0.75 MG, UNK
     Route: 048
     Dates: start: 20051109, end: 20051112
  26. LORAZEPAM [Concomitant]
     Dosage: 0.5 MG, UNK
     Route: 048
     Dates: start: 20051113, end: 20051123
  27. BISOPROLOL [Concomitant]
     Dosage: 5 MG, UNK
     Route: 048
     Dates: end: 20051107
  28. BISOPROLOL [Concomitant]
     Dosage: 2.5 MG, UNK
     Route: 048
     Dates: start: 20051108
  29. GODAMED                            /00002701/ [Concomitant]
     Dosage: 100 MG, UNK
     Route: 048
  30. ISCOVER [Concomitant]
     Dosage: 75 MG, UNK
     Route: 048

REACTIONS (7)
  - ASTHENIA [None]
  - DRUG INTERACTION [None]
  - FALL [None]
  - FATIGUE [None]
  - HYPOCHLORAEMIA [None]
  - HYPOKALAEMIA [None]
  - HYPONATRAEMIA [None]
